FAERS Safety Report 19798672 (Version 1)
Quarter: 2021Q3

REPORT INFORMATION
  Report Type: Spontaneous
  Country: US (occurrence: US)
  Receive Date: 20210907
  Receipt Date: 20210907
  Transmission Date: 20211014
  Serious: No
  Sender: FDA-Public Use
  Company Number: None

PATIENT
  Age: 76 Year
  Sex: Female
  Weight: 58.05 kg

DRUGS (22)
  1. GARLIC OIL [Concomitant]
     Active Substance: GARLIC OIL
  2. GINGER ROOT [Concomitant]
     Active Substance: GINGER
  3. VITAMIN B12 [Concomitant]
     Active Substance: CYANOCOBALAMIN
  4. CAPECITABINE. [Suspect]
     Active Substance: CAPECITABINE
     Indication: BREAST CANCER
     Dosage: ?          OTHER FREQUENCY:BID 14/21 DAYS;?
     Route: 048
     Dates: start: 20191120
  5. FISH OIL [Concomitant]
     Active Substance: FISH OIL
  6. GLUCOTROL [Concomitant]
     Active Substance: GLIPIZIDE
  7. THERAGRAN?M [Concomitant]
     Active Substance: VITAMINS
  8. ZINC CHELATED [Concomitant]
  9. ALEVE [Concomitant]
     Active Substance: NAPROXEN SODIUM
  10. ALPRAZOLAM. [Concomitant]
     Active Substance: ALPRAZOLAM
  11. CALCIUM CARBONATE. [Concomitant]
     Active Substance: CALCIUM CARBONATE
  12. CINNAMON BARK [Concomitant]
     Active Substance: CINNAMON\HERBALS
  13. MAGNESIUM OXIDE. [Concomitant]
     Active Substance: MAGNESIUM OXIDE
  14. CHOLESTYRAMINE. [Concomitant]
     Active Substance: CHOLESTYRAMINE
  15. CLARITIN [Concomitant]
     Active Substance: LORATADINE
  16. GENTEAL TEARS (MILD) [Concomitant]
     Active Substance: DEXTRAN 70\HYPROMELLOSE 2910 (4000 MPA.S)
  17. CRESTOR [Concomitant]
     Active Substance: ROSUVASTATIN CALCIUM
  18. IBUPROFEN. [Concomitant]
     Active Substance: IBUPROFEN
  19. ASCORBIC ACID. [Concomitant]
     Active Substance: ASCORBIC ACID
  20. B?6 [Concomitant]
  21. CYLCOBENZAPRINE [Concomitant]
  22. SELENIUM [Concomitant]
     Active Substance: SELENIUM

REACTIONS (1)
  - Inflammation [None]

NARRATIVE: CASE EVENT DATE: 20210907
